FAERS Safety Report 8172428-8 (Version None)
Quarter: 2012Q1

REPORT INFORMATION
  Report Type: 
  Country: None (occurrence: None)
  Receive Date: 20120224
  Receipt Date: 20120224
  Transmission Date: 20120608
  Serious: Yes (Death, Hospitalization)
  Sender: FDA-Public Use
  Company Number: None

PATIENT
  Sex: Female
  Weight: 88 kg

DRUGS (2)
  1. DAUNORUBICIN HCL [Suspect]
     Dosage: 360 MG
     Dates: end: 20120210
  2. CYTARABINE [Suspect]
     Dosage: 1400 MG
     Dates: end: 20120204

REACTIONS (18)
  - AGITATION [None]
  - GENERAL PHYSICAL HEALTH DETERIORATION [None]
  - ACIDOSIS [None]
  - ALANINE AMINOTRANSFERASE INCREASED [None]
  - HAEMATOCRIT DECREASED [None]
  - MULTI-ORGAN FAILURE [None]
  - HAEMORRHAGE [None]
  - BLOOD BILIRUBIN INCREASED [None]
  - ASPARTATE AMINOTRANSFERASE INCREASED [None]
  - PULSE ABSENT [None]
  - CONFUSIONAL STATE [None]
  - BODY TEMPERATURE INCREASED [None]
  - STAPHYLOCOCCUS TEST POSITIVE [None]
  - OXYGEN SATURATION DECREASED [None]
  - DYSPNOEA [None]
  - HAEMOGLOBIN DECREASED [None]
  - PLATELET COUNT DECREASED [None]
  - SEPTIC SHOCK [None]
